FAERS Safety Report 8278856-4 (Version None)
Quarter: 2012Q2

REPORT INFORMATION
  Report Type: 
  Country: None (occurrence: None)
  Receive Date: 20120412
  Receipt Date: 20111201
  Transmission Date: 20120825
  Serious: No
  Sender: FDA-Public Use
  Company Number: US-ASTRAZENECA-2011SE35353

PATIENT
  Age: 58 Year
  Sex: Female

DRUGS (6)
  1. NEXIUM [Suspect]
     Route: 048
  2. METFORMIN HCL [Concomitant]
  3. CRESTOR [Suspect]
     Route: 048
  4. JANUVIA [Concomitant]
  5. BLOOD SUGAR MEDICATION [Concomitant]
  6. LANTUS [Concomitant]

REACTIONS (2)
  - BLOOD GLUCOSE INCREASED [None]
  - DRUG DOSE OMISSION [None]
